FAERS Safety Report 5182580-4 (Version None)
Quarter: 2006Q4

REPORT INFORMATION
  Report Type: 
  Country: None (occurrence: None)
  Receive Date: 20061220
  Receipt Date: 20040726
  Transmission Date: 20070319
  Serious: Yes (Hospitalization, Other)
  Sender: FDA-Public Use
  Company Number: US-NOVOPROD-238340

PATIENT
  Sex: Female
  Weight: 99.773 kg

DRUGS (6)
  1. ACTIVELLA [Suspect]
     Indication: HORMONE REPLACEMENT THERAPY
     Route: 048
     Dates: start: 20010417
  2. PREMARIN [Suspect]
     Indication: HORMONE REPLACEMENT THERAPY
  3. PREMPRO [Suspect]
     Indication: HORMONE REPLACEMENT THERAPY
     Dosage: 5 MG/0.625 MG
     Dates: start: 19990116, end: 20010301
  4. NAPROXEN [Concomitant]
     Indication: ILL-DEFINED DISORDER
     Dosage: 500 MG, UNK
     Dates: start: 20001201, end: 20020801
  5. PREDNISONE TAB [Concomitant]
     Indication: ILL-DEFINED DISORDER
     Dosage: 10 MG, UNK
     Dates: start: 20010701, end: 20020601
  6. LIDEX [Concomitant]
     Indication: ILL-DEFINED DISORDER
     Dosage: 0.05% CR
     Dates: start: 20010701, end: 20020601

REACTIONS (1)
  - DEEP VEIN THROMBOSIS [None]
